FAERS Safety Report 20729878 (Version 1)
Quarter: 2022Q2

REPORT INFORMATION
  Report Type: Report from Study
  Country: US (occurrence: US)
  Receive Date: 20220420
  Receipt Date: 20220420
  Transmission Date: 20220721
  Serious: Yes (Other)
  Sender: FDA-Public Use
  Company Number: US-BoehringerIngelheim-2022-BI-150108

PATIENT
  Age: 72 Year
  Sex: Male

DRUGS (2)
  1. OFEV [Suspect]
     Active Substance: NINTEDANIB
     Indication: Idiopathic pulmonary fibrosis
     Route: 048
     Dates: start: 20220112, end: 20220305
  2. OFEV [Suspect]
     Active Substance: NINTEDANIB
     Indication: Systemic sclerosis pulmonary

REACTIONS (4)
  - Scleroderma [Unknown]
  - Urine flow decreased [Not Recovered/Not Resolved]
  - Diarrhoea [Recovered/Resolved]
  - Urine output decreased [Not Recovered/Not Resolved]

NARRATIVE: CASE EVENT DATE: 20220101
